FAERS Safety Report 15574374 (Version 1)
Quarter: 2018Q4

REPORT INFORMATION
  Report Type: Spontaneous
  Country: CA (occurrence: CA)
  Receive Date: 20181101
  Receipt Date: 20181101
  Transmission Date: 20190205
  Serious: Yes (Other)
  Sender: FDA-Public Use
  Company Number: CA-BAYER-2018-200290

PATIENT
  Age: 88 Year
  Sex: Female

DRUGS (4)
  1. RED BLOOD CELLS [Concomitant]
     Active Substance: HUMAN RED BLOOD CELL
     Indication: PREMEDICATION
     Dosage: 91 ML, UNK
  2. DABIGATRAN [Interacting]
     Active Substance: DABIGATRAN
     Indication: PROPHYLAXIS
     Dosage: 110 MG, BID
  3. RED BLOOD CELLS [Concomitant]
     Active Substance: HUMAN RED BLOOD CELL
     Indication: PREMEDICATION
     Dosage: 100 ML, UNK
  4. ASPIRIN 81 MG [Suspect]
     Active Substance: ASPIRIN
     Indication: PROPHYLAXIS
     Dosage: 81 MG, QD

REACTIONS (3)
  - Osteorrhagia [None]
  - Haemoglobin decreased [Recovered/Resolved]
  - Labelled drug-drug interaction medication error [None]
